FAERS Safety Report 17511195 (Version 2)
Quarter: 2020Q2

REPORT INFORMATION
  Report Type: Spontaneous
  Country: US (occurrence: US)
  Receive Date: 20200306
  Receipt Date: 20200604
  Transmission Date: 20200713
  Serious: No
  Sender: FDA-Public Use
  Company Number: US-HARMONY BIOSCIENCES-2020HMY00112

PATIENT
  Sex: Female
  Weight: 77.1 kg

DRUGS (6)
  1. WAKIX [Suspect]
     Active Substance: PITOLISANT HYDROCHLORIDE
     Indication: NARCOLEPSY
     Dosage: 35.6 MG, 1X/DAY
     Route: 048
     Dates: start: 201909, end: 202002
  2. ADVIL [Concomitant]
     Active Substance: IBUPROFEN
     Dosage: UNK, AS NEEDED
  3. VITAMIN D [Concomitant]
     Active Substance: VITAMIN D NOS
  4. ADDERALL [Concomitant]
     Active Substance: AMPHETAMINE ASPARTATE\AMPHETAMINE SULFATE\DEXTROAMPHETAMINE SACCHARATE\DEXTROAMPHETAMINE SULFATE
  5. MODAFINIL. [Concomitant]
     Active Substance: MODAFINIL
     Dosage: UNK, USED INTERMITTENTLY
  6. WAKIX [Suspect]
     Active Substance: PITOLISANT HYDROCHLORIDE
     Dosage: 35.6 MG, 1X/DAY
     Dates: start: 202002, end: 202002

REACTIONS (7)
  - Irritability [Recovered/Resolved]
  - Fatigue [Recovered/Resolved]
  - Therapeutic response unexpected [Recovered/Resolved]
  - Abdominal pain upper [Recovering/Resolving]
  - Product dose omission [Recovered/Resolved]
  - Gastrointestinal pain [Recovering/Resolving]
  - Yawning [Unknown]

NARRATIVE: CASE EVENT DATE: 2019
